FAERS Safety Report 7648602-3 (Version None)
Quarter: 2011Q3

REPORT INFORMATION
  Report Type: 
  Country: None (occurrence: None)
  Receive Date: 20110801
  Receipt Date: 20110718
  Transmission Date: 20111222
  Serious: No
  Sender: FDA-Public Use
  Company Number: PHHY2011IT65393

PATIENT

DRUGS (4)
  1. ESOMEPRAZOLE MAGNESIUM [Concomitant]
     Dosage: 40 MG, UNK
  2. TASIGNA [Suspect]
     Indication: CHRONIC MYELOID LEUKAEMIA
     Dosage: 800 MG, DAILY
     Route: 048
     Dates: start: 20110208, end: 20110211
  3. SOLOSA [Concomitant]
     Dosage: 4 MG, UNK
  4. METFORMIN HCL [Concomitant]
     Dosage: 1700 MG, UNK

REACTIONS (2)
  - ABDOMINAL PAIN UPPER [None]
  - HYPERGLYCAEMIA [None]
